FAERS Safety Report 9630192 (Version 2)
Quarter: 2013Q4

REPORT INFORMATION
  Report Type: Spontaneous
  Country: US (occurrence: US)
  Receive Date: 20131017
  Receipt Date: 20131204
  Transmission Date: 20140711
  Serious: Yes (Other)
  Sender: FDA-Public Use
  Company Number: CHPA2013US015544

PATIENT
  Age: 82 Year
  Sex: Male

DRUGS (1)
  1. VOLTAREN GEL [Suspect]
     Indication: ARTHRITIS
     Dosage: UNK, QD
     Route: 061

REACTIONS (3)
  - Tendon disorder [Unknown]
  - Rash [Not Recovered/Not Resolved]
  - Underdose [Unknown]
